FAERS Safety Report 5195803-2 (Version None)
Quarter: 2007Q1

REPORT INFORMATION
  Report Type: 
  Country: None (occurrence: None)
  Receive Date: 20070102
  Receipt Date: 20061219
  Transmission Date: 20070707
  Serious: Yes (Hospitalization, Disabling)
  Sender: FDA-Public Use
  Company Number: GBWYE749005DEC06

PATIENT
  Sex: Female

DRUGS (7)
  1. ENBREL [Suspect]
     Indication: RHEUMATOID ARTHRITIS
     Dosage: 50MG WEEKLY
     Route: 058
     Dates: start: 20050201
  2. PREDNISOLONE [Suspect]
     Indication: RHEUMATOID ARTHRITIS
     Dosage: 2-5MG/DAY
     Route: 048
     Dates: start: 20020601
  3. METHOTREXATE [Concomitant]
     Indication: RHEUMATOID ARTHRITIS
     Dosage: 20MG/WEEK
     Route: 048
     Dates: start: 20060601
  4. PULMOVENT [Concomitant]
     Indication: BRONCHITIS
     Route: 055
     Dates: start: 20050101
  5. CRESTOR [Concomitant]
     Indication: BLOOD CHOLESTEROL INCREASED
     Dosage: 10MG/DAY
     Route: 048
     Dates: start: 20030101
  6. FOLIC ACID [Concomitant]
     Indication: RHEUMATOID ARTHRITIS
     Dosage: 5MG/WEEK
     Route: 048
     Dates: start: 20060601
  7. ARTHROTEC [Concomitant]
     Indication: RHEUMATOID ARTHRITIS
     Dosage: 70MG/DAY
     Route: 048
     Dates: start: 20020101

REACTIONS (1)
  - OSTEONECROSIS [None]
